FAERS Safety Report 10762398 (Version 1)
Quarter: 2015Q1

REPORT INFORMATION
  Report Type: Report from Study
  Country: IE (occurrence: IE)
  Receive Date: 20150204
  Receipt Date: 20150204
  Transmission Date: 20150721
  Serious: Yes (Hospitalization)
  Sender: FDA-Public Use
  Company Number: IE-EMD SERONO-7146243

PATIENT
  Age: 26 Year
  Sex: Female

DRUGS (1)
  1. REBIF [Suspect]
     Active Substance: INTERFERON BETA-1A
     Indication: RELAPSING-REMITTING MULTIPLE SCLEROSIS
     Route: 058
     Dates: start: 20110330, end: 201402

REACTIONS (4)
  - Malaise [Unknown]
  - Pain in extremity [Not Recovered/Not Resolved]
  - Memory impairment [Unknown]
  - Fatigue [Unknown]

NARRATIVE: CASE EVENT DATE: 20120701
